FAERS Safety Report 4819324-9 (Version None)
Quarter: 2005Q4

REPORT INFORMATION
  Report Type: 
  Country: None (occurrence: None)
  Receive Date: 20051031
  Receipt Date: 20050927
  Transmission Date: 20060501
  Serious: Yes (Hospitalization)
  Sender: FDA-Public Use
  Company Number: CLOF-10109

PATIENT
  Age: 46 Year
  Sex: Male

DRUGS (5)
  1. CLOLAR [Suspect]
     Indication: DISEASE RECURRENCE
     Dosage: 4 MG/M2 QD X 5 IV
     Route: 042
     Dates: start: 20050627, end: 20050812
  2. CLOLAR [Suspect]
     Indication: MULTIPLE MYELOMA
     Dosage: 4 MG/M2 QD X 5 IV
     Route: 042
     Dates: start: 20050627, end: 20050812
  3. PREVACID [Concomitant]
  4. PRILOSEC [Concomitant]
  5. COUMADIN [Concomitant]

REACTIONS (3)
  - HEADACHE [None]
  - NAUSEA [None]
  - VOMITING [None]
